FAERS Safety Report 16231894 (Version 5)
Quarter: 2019Q3

REPORT INFORMATION
  Report Type: Spontaneous
  Country: CA (occurrence: CA)
  Receive Date: 20190424
  Receipt Date: 20190924
  Transmission Date: 20191004
  Serious: Yes (Other)
  Sender: FDA-Public Use
  Company Number: CA-CELLTRION INC.-2018CA017547

PATIENT

DRUGS (28)
  1. INFLECTRA [Suspect]
     Active Substance: INFLIXIMAB-DYYB
     Dosage: 275 MG, 0, 2, 6, THEN EVERY 8 WEEKS
     Route: 042
     Dates: start: 20180403
  2. INFLECTRA [Suspect]
     Active Substance: INFLIXIMAB-DYYB
     Dosage: 10 MG/KG, (RE-INDUCTION) (EVERY 0, 2, 6, THEN EVERY 4 WEEKS)
     Route: 042
     Dates: start: 20190222
  3. INFLECTRA [Suspect]
     Active Substance: INFLIXIMAB-DYYB
     Dosage: 10 MG/KG, (RE-INDUCTION) (EVERY 0, 2, 6, THEN EVERY 4 WEEKS)
     Route: 042
     Dates: start: 20190322
  4. INFLECTRA [Suspect]
     Active Substance: INFLIXIMAB-DYYB
     Dosage: 10 MG/KG, (RE-INDUCTION) (EVERY 0, 2, 6, THEN EVERY 4 WEEKS)
     Route: 042
     Dates: start: 20190610
  5. INFLECTRA [Suspect]
     Active Substance: INFLIXIMAB-DYYB
     Dosage: 10 MG/KG, (RE-INDUCTION) (EVERY 0, 2, 6, THEN EVERY 4 WEEKS)
     Route: 042
     Dates: start: 20190712
  6. INFLECTRA [Suspect]
     Active Substance: INFLIXIMAB-DYYB
     Indication: CROHN^S DISEASE
     Dosage: 225 MG, UNK
     Route: 065
  7. INFLECTRA [Suspect]
     Active Substance: INFLIXIMAB-DYYB
     Dosage: 275 MG, 0, 2, 6, THEN EVERY 8 WEEKS
     Route: 042
     Dates: start: 20180113
  8. INFLECTRA [Suspect]
     Active Substance: INFLIXIMAB-DYYB
     Dosage: 275 MG, 2, 6, THEN EVERY 8 WEEKS
     Route: 042
     Dates: start: 20180628
  9. INFLECTRA [Suspect]
     Active Substance: INFLIXIMAB-DYYB
     Dosage: UNK
     Route: 042
     Dates: start: 20181005
  10. TYLENOL WITH CODEINE [Concomitant]
     Active Substance: ACETAMINOPHEN\CODEINE PHOSPHATE
     Dosage: 3 TABLETS, DAILY
     Route: 048
  11. INFLECTRA [Suspect]
     Active Substance: INFLIXIMAB-DYYB
     Dosage: 275 MG, 0, 2, 6, THEN EVERY 8 WEEKS
     Route: 042
     Dates: start: 20171220, end: 20180601
  12. INFLECTRA [Suspect]
     Active Substance: INFLIXIMAB-DYYB
     Dosage: 580 MG EVERY 8 WEEKS
     Route: 042
     Dates: start: 20180628, end: 20180727
  13. INFLECTRA [Suspect]
     Active Substance: INFLIXIMAB-DYYB
     Dosage: 10 MG/KG, (RE-INDUCTION) (EVERY 0, 2, 6, THEN EVERY 4 WEEKS)
     Route: 042
     Dates: start: 20180825
  14. INFLECTRA [Suspect]
     Active Substance: INFLIXIMAB-DYYB
     Dosage: 10 MG/KG, (RE-INDUCTION) (EVERY 0, 2, 6, THEN EVERY 4 WEEKS)
     Route: 042
     Dates: start: 20181130
  15. INFLECTRA [Suspect]
     Active Substance: INFLIXIMAB-DYYB
     Dosage: 10 MG/KG, (RE-INDUCTION) (EVERY 0, 2, 6, THEN EVERY 4 WEEKS)
     Route: 042
     Dates: start: 20181221
  16. INFLECTRA [Suspect]
     Active Substance: INFLIXIMAB-DYYB
     Dosage: 275 MG, 2, 6, THEN EVERY 8 WEEKS
     Route: 042
     Dates: start: 20180601, end: 20180601
  17. INFLECTRA [Suspect]
     Active Substance: INFLIXIMAB-DYYB
     Dosage: 10 MG/KG, (RE-INDUCTION) (EVERY 0, 2, 6, THEN EVERY 4 WEEKS)
     Route: 042
     Dates: start: 20190809
  18. INFLECTRA [Suspect]
     Active Substance: INFLIXIMAB-DYYB
     Dosage: 10 MG/KG, (RE-INDUCTION) (EVERY 0, 2, 6, THEN EVERY 4 WEEKS)
     Route: 042
     Dates: start: 20190911
  19. INFLECTRA [Suspect]
     Active Substance: INFLIXIMAB-DYYB
     Dosage: 10 MG/KG, EVERY 8 WEEKS
     Route: 042
     Dates: start: 20180102
  20. INFLECTRA [Suspect]
     Active Substance: INFLIXIMAB-DYYB
     Dosage: 275 MG, 2, 6, THEN EVERY 8 WEEKS
     Route: 042
  21. INFLECTRA [Suspect]
     Active Substance: INFLIXIMAB-DYYB
     Dosage: 10 MG/KG, (RE-INDUCTION) (EVERY 0, 2, 6, THEN EVERY 4 WEEKS)
     Route: 042
     Dates: start: 20180905
  22. INFLECTRA [Suspect]
     Active Substance: INFLIXIMAB-DYYB
     Dosage: 510 MG, UNK
     Route: 042
     Dates: start: 20181102
  23. INFLECTRA [Suspect]
     Active Substance: INFLIXIMAB-DYYB
     Dosage: 10 MG/KG, (RE-INDUCTION) (EVERY 0, 2, 6, THEN EVERY 4 WEEKS)
     Route: 042
     Dates: start: 20190125
  24. INFLECTRA [Suspect]
     Active Substance: INFLIXIMAB-DYYB
     Dosage: 275 MG, 0, 2, 6, THEN EVERY 8 WEEKS
     Route: 042
     Dates: start: 20180208
  25. INFLECTRA [Suspect]
     Active Substance: INFLIXIMAB-DYYB
     Dosage: 275 MG, 0, 2, 6, THEN EVERY 8 WEEKS
     Route: 042
  26. INFLECTRA [Suspect]
     Active Substance: INFLIXIMAB-DYYB
     Dosage: 275 MG, EVERY 2, 6, THEN EVERY 8 WEEKS
     Route: 042
     Dates: start: 20180504
  27. CIPRO [Concomitant]
     Active Substance: CIPROFLOXACIN HYDROCHLORIDE
     Dosage: 500 MG, 2X/DAY
     Route: 048
     Dates: start: 1998
  28. INFLECTRA [Suspect]
     Active Substance: INFLIXIMAB-DYYB
     Dosage: 580 MG EVERY 8 WEEKS
     Route: 042
     Dates: start: 20180727, end: 20180727

REACTIONS (9)
  - Drug level below therapeutic [Not Recovered/Not Resolved]
  - Off label use [Unknown]
  - Product use issue [Unknown]
  - Functional gastrointestinal disorder [Unknown]
  - Blood pressure fluctuation [Unknown]
  - Condition aggravated [Not Recovered/Not Resolved]
  - Incorrect dose administered [Unknown]
  - Malaise [Not Recovered/Not Resolved]
  - Drug specific antibody [Not Recovered/Not Resolved]

NARRATIVE: CASE EVENT DATE: 201804
